FAERS Safety Report 6011880-0 (Version None)
Quarter: 2008Q4

REPORT INFORMATION
  Report Type: 
  Country: None (occurrence: None)
  Receive Date: 20081218
  Receipt Date: 20080926
  Transmission Date: 20090506
  Serious: No
  Sender: FDA-Public Use
  Company Number: US-ASTRAZENECA-2008UW20362

PATIENT
  Age: 76 Year
  Sex: Male
  Weight: 74.8 kg

DRUGS (10)
  1. CRESTOR [Suspect]
     Indication: BLOOD CHOLESTEROL INCREASED
     Route: 048
     Dates: start: 20080901
  2. TRICOR [Concomitant]
  3. DIOVAN [Concomitant]
  4. METOPROLOL TARTRATE [Concomitant]
  5. COSOPT [Concomitant]
  6. PLAVIX [Concomitant]
  7. ASPIRIN [Concomitant]
  8. VITAMIN B-12 [Concomitant]
  9. CO-Q10 [Concomitant]
  10. LEVOTHYROXINE SODIUM [Concomitant]

REACTIONS (2)
  - BURNING SENSATION [None]
  - PHOTOSENSITIVITY REACTION [None]
